FAERS Safety Report 7769591-7 (Version None)
Quarter: 2011Q3

REPORT INFORMATION
  Report Type: 
  Country: None (occurrence: None)
  Receive Date: 20110922
  Receipt Date: 20101214
  Transmission Date: 20111222
  Serious: No
  Sender: FDA-Public Use
  Company Number: US-ASTRAZENECA-2010SE59136

PATIENT
  Age: 47 Year
  Sex: Female
  Weight: 63.5 kg

DRUGS (2)
  1. SEROQUEL [Suspect]
     Indication: SLEEP DISORDER
     Route: 048
  2. SEROQUEL [Suspect]
     Route: 048
     Dates: start: 20101209, end: 20101211

REACTIONS (7)
  - NERVOUSNESS [None]
  - GASTROENTERITIS VIRAL [None]
  - FEAR [None]
  - FOOD INTOLERANCE [None]
  - FEELING JITTERY [None]
  - HEART RATE INCREASED [None]
  - FEELING ABNORMAL [None]
